FAERS Safety Report 13782882 (Version 1)
Quarter: 2017Q3

REPORT INFORMATION
  Report Type: Spontaneous
  Country: US (occurrence: US)
  Receive Date: 20170724
  Receipt Date: 20170724
  Transmission Date: 20171127
  Serious: No
  Sender: FDA-Public Use
  Company Number: US-PFIZER INC-2017292489

PATIENT
  Age: 69 Year
  Sex: Female
  Weight: 65.32 kg

DRUGS (2)
  1. IBRANCE [Suspect]
     Active Substance: PALBOCICLIB
     Indication: NEOPLASM MALIGNANT
     Dosage: 75 MG, CYCLIC (TOOK THE 75MG FOR TWO WEEKS, OFF FOR ONE WEEK, AND BACK ON 75MG FOR ANOTHER WEEK)
     Dates: start: 2017
  2. IBRANCE [Suspect]
     Active Substance: PALBOCICLIB
     Dosage: 100 MG, DAILY (AT NIGHT)
     Route: 048
     Dates: start: 20170627

REACTIONS (1)
  - Malaise [Unknown]
